FAERS Safety Report 6750972-5 (Version None)
Quarter: 2010Q2

REPORT INFORMATION
  Report Type: 
  Country: None (occurrence: None)
  Receive Date: 20100602
  Receipt Date: 20100527
  Transmission Date: 20101027
  Serious: Yes (Other)
  Sender: FDA-Public Use
  Company Number: US-RB-010363-10

PATIENT
  Age: 80 Year
  Sex: Female

DRUGS (2)
  1. MUCINEX [Suspect]
     Dosage: TOOK ONE TABLET EVERY 12 HOURS FOR A DAY AND A HALF
     Route: 048
     Dates: start: 20100520
  2. ROBITUSSIN [Concomitant]

REACTIONS (1)
  - FAECES DISCOLOURED [None]
